FAERS Safety Report 25552243 (Version 3)
Quarter: 2025Q3

REPORT INFORMATION
  Report Type: Report from Study
  Country: US (occurrence: US)
  Receive Date: 20250715
  Receipt Date: 20250922
  Transmission Date: 20251020
  Serious: Yes (Hospitalization, Other)
  Sender: ACADIA PHARMACEUTICALS
  Company Number: US-ACADIA PHARMACEUTICALS INC.-ACA-2025-PIM-008133

PATIENT
  Sex: Male

DRUGS (35)
  1. NUPLAZID [Suspect]
     Active Substance: PIMAVANSERIN TARTRATE
     Indication: Parkinson^s disease psychosis
     Dosage: 34 MILLIGRAM, QD
     Route: 048
  2. ZYLOPRIM [Concomitant]
     Active Substance: ALLOPURINOL
     Dosage: TAKE 1 TABLET DAILY
     Route: 048
     Dates: start: 20241103, end: 20250313
  3. ELIQUIS [Concomitant]
     Active Substance: APIXABAN
     Dosage: 5 MILLIGRAM, BID (TAKE 1 TABLET (S MG TOTAL) BY MOUTH 2 (TWO) TIMES)
     Route: 048
     Dates: end: 20250702
  4. BUTRANS [Concomitant]
     Active Substance: BUPRENORPHINE
     Indication: Pain
     Route: 062
     Dates: start: 20250116, end: 20250410
  5. WELLBUTRIN [Concomitant]
     Active Substance: BUPROPION HYDROCHLORIDE
     Dosage: TAKE 1 TABLET (100 MG TOTAL) BY MOUTH 3 TIMES DAILY
     Route: 048
     Dates: end: 20250702
  6. RYTARY [Concomitant]
     Active Substance: CARBIDOPA\LEVODOPA
     Indication: Tremor
     Dosage: TAKE 1 CAPSULE BY MOUTH 4 (FOUR) TIMES DAILY.
     Dates: end: 20250325
  7. RYTARY [Concomitant]
     Active Substance: CARBIDOPA\LEVODOPA
     Indication: Restless legs syndrome
     Dosage: 36.25- 145 MG CPER ER (TAKE 1 CAPSULE BY MOUTH 4 (FOUR) TIMES DAILY)
     Route: 048
     Dates: start: 20241217, end: 20250325
  8. OMNICEF [Concomitant]
     Active Substance: CEFDINIR
     Route: 048
     Dates: start: 20250120, end: 20250311
  9. ZYRTEC [Concomitant]
     Active Substance: CETIRIZINE HYDROCHLORIDE
     Dosage: 10 MILLIGRAM, QD (TAKE 1 TABLET (10 MG TOTAL) BY MOUTH DAILY)
     Route: 048
     Dates: end: 20250702
  10. VITAMIN D3 [Concomitant]
     Active Substance: CHOLECALCIFEROL
     Dosage: TAKE 1 CAPSULE (2,000 UNITS TOTAL) BY MOUTH DALLY.
     Route: 048
     Dates: end: 20250702
  11. KLONOPIN [Concomitant]
     Active Substance: CLONAZEPAM
     Indication: Anxiety
     Dates: start: 20240820, end: 20250703
  12. KLONOPIN [Concomitant]
     Active Substance: CLONAZEPAM
     Indication: Panic disorder
  13. DICLOFENAC SODIUM [Concomitant]
     Active Substance: DICLOFENAC SODIUM
     Route: 061
     Dates: start: 20240924, end: 20250703
  14. LANOXIN [Concomitant]
     Active Substance: DIGOXIN
     Dosage: TAKE 1 TABLET (125 MCG TOTAL) BY MOUTH DALLY.
     Route: 048
     Dates: start: 20241110, end: 20250312
  15. CARDIZEM [Concomitant]
     Active Substance: DILTIAZEM HYDROCHLORIDE
     Dosage: TAKE 1 TABLET (30 MG TOTAL) BY MOUTH 4 (FOUR) TIMES
     Route: 048
     Dates: start: 20240924, end: 20250703
  16. NEXIUM I.V. [Concomitant]
     Active Substance: ESOMEPRAZOLE SODIUM
     Dosage: TAKE 1 CAPSULE DAILY
     Route: 048
     Dates: start: 20241220, end: 20250515
  17. LASIX [Concomitant]
     Active Substance: FUROSEMIDE
     Dosage: TAKE 1 TABLET (40 MG TOTAL) BY MOUTH DAILY.
     Route: 048
     Dates: start: 20240924, end: 20250707
  18. CHRONULAC [Concomitant]
     Active Substance: LACTULOSE
     Route: 048
     Dates: start: 20250115, end: 20250703
  19. LEVOTHYROXINE [Concomitant]
     Active Substance: LEVOTHYROXINE
     Dosage: TAKE 1 TABLET (200 MCG TOTAL) BY MOUTH DAILY.
     Route: 048
     Dates: start: 20241216, end: 20250702
  20. MELATONIN [Concomitant]
     Active Substance: MELATONIN
     Dosage: TAKE 2 CAPSULES (10 MG TOTAL) BY MOUTH NIGHTLY.
     Dates: end: 20250702
  21. NALOXONE [Concomitant]
     Active Substance: NALOXONE
     Route: 045
     Dates: start: 20250102
  22. MACROBID [Concomitant]
     Active Substance: NITROFURANTOIN\NITROFURANTOIN MONOHYDRATE
     Indication: Urinary tract infection
     Dosage: TAKE 1 CAPSULE (100 MG TOTAL) BY MOUTH DAILY
     Dates: end: 20250703
  23. ZOFRAN [Concomitant]
     Active Substance: ONDANSETRON HYDROCHLORIDE
     Indication: Nausea
     Route: 048
     Dates: start: 20240129, end: 20250703
  24. ZOFRAN [Concomitant]
     Active Substance: ONDANSETRON HYDROCHLORIDE
     Indication: Vomiting
  25. PROTONIX [Concomitant]
     Active Substance: PANTOPRAZOLE SODIUM
     Dosage: TAKE 1 TABLET (40 MG TOTAL) BY MOUTH DAILY.
     Route: 048
     Dates: end: 20250702
  26. MIRALAX [Concomitant]
     Active Substance: POLYETHYLENE GLYCOL 3350
     Dosage: TAKE 17 G BY MOUTH DAILY.
     Route: 048
     Dates: start: 20250120, end: 20250530
  27. KLOR-CON M10 [Concomitant]
     Active Substance: POTASSIUM CHLORIDE
     Dosage: TAKE 1 TABLET (10 MEQ TOTEL) BY MOUTH 3 (THREE) TIMES A DAY
     Route: 048
     Dates: end: 20250703
  28. LYRICA [Concomitant]
     Active Substance: PREGABALIN
     Route: 048
     Dates: start: 20241211, end: 20250326
  29. CRESTOR [Concomitant]
     Active Substance: ROSUVASTATIN CALCIUM
     Dosage: TAKE 1 TABLET (10 MG TOTAL) BY MOUTH AT BEDTIME.
     Route: 048
     Dates: start: 20240924, end: 20250702
  30. OZEMPIC [Concomitant]
     Active Substance: SEMAGLUTIDE
     Indication: Type 2 diabetes mellitus
     Route: 058
     Dates: start: 20241022
  31. PERI-COLACE [DOCUSATE SODIUM;SENNOSIDE A+B] [Concomitant]
     Route: 048
     Dates: start: 20240619, end: 20250702
  32. CIALIS [Concomitant]
     Active Substance: TADALAFIL
     Indication: Erectile dysfunction
     Dosage: TAKE 1 TABLET (5 MG TOTAL) BY MOUTH DAILY
     Route: 048
     Dates: end: 20250703
  33. FLOMAX [Concomitant]
     Active Substance: TAMSULOSIN HYDROCHLORIDE
     Route: 048
     Dates: start: 20231109, end: 20250207
  34. DESYREL [Concomitant]
     Active Substance: TRAZODONE HYDROCHLORIDE
     Route: 048
     Dates: start: 20240907, end: 20250617
  35. VITAMIN B COMPLEX [Concomitant]
     Active Substance: CYANOCOBALAMIN\DEXPANTHENOL\NIACINAMIDE\PYRIDOXINE HYDROCHLORIDE\RIBOFLAVIN 5^-PHOSPHATE SODIUM\THIA
     Route: 048
     Dates: end: 20250530

REACTIONS (9)
  - Decubitus ulcer [Not Recovered/Not Resolved]
  - Cardiac flutter [Unknown]
  - Mental status changes [Unknown]
  - Hallucination, visual [Unknown]
  - Irregular sleep phase [Unknown]
  - Migraine [Recovering/Resolving]
  - Amnesia [Unknown]
  - Bedridden [Not Recovered/Not Resolved]
  - Constipation [Recovering/Resolving]
